FAERS Safety Report 7675159-3 (Version None)
Quarter: 2011Q3

REPORT INFORMATION
  Report Type: 
  Country: None (occurrence: None)
  Receive Date: 20110810
  Receipt Date: 20110808
  Transmission Date: 20111222
  Serious: Yes (Hospitalization, Other)
  Sender: FDA-Public Use
  Company Number: US-CEPHALON-US016856

PATIENT
  Sex: Female
  Weight: 54 kg

DRUGS (6)
  1. LAMICTAL [Suspect]
     Indication: BIPOLAR DISORDER
     Route: 048
     Dates: start: 20051018
  2. ABILIFY [Concomitant]
     Indication: BIPOLAR II DISORDER
     Dosage: 10MG-30MG TABLET QD
     Route: 048
     Dates: start: 20051209
  3. SPIRONOLACTONE [Concomitant]
     Indication: ACNE
     Route: 048
     Dates: start: 20040101
  4. PROVIGIL [Suspect]
     Route: 048
     Dates: start: 20060113, end: 20060113
  5. LAMICTAL [Suspect]
     Route: 048
     Dates: start: 20051130, end: 20051203
  6. PROVIGIL [Suspect]
     Indication: ATTENTION DEFICIT/HYPERACTIVITY DISORDER
     Route: 048
     Dates: start: 20051018, end: 20051202

REACTIONS (2)
  - STEVENS-JOHNSON SYNDROME [None]
  - RASH MACULO-PAPULAR [None]
